FAERS Safety Report 11246283 (Version 1)
Quarter: 2015Q3

REPORT INFORMATION
  Report Type: Spontaneous
  Country: US (occurrence: None)
  Receive Date: 20150706
  Receipt Date: 20150706
  Transmission Date: 20151125
  Serious: Yes (Hospitalization)
  Sender: FDA-Public Use
  Company Number: None

PATIENT
  Age: 74 Year
  Sex: Female
  Weight: 53.2 kg

DRUGS (2)
  1. DILTIAZEM [Suspect]
     Active Substance: DILTIAZEM
  2. LITHIUM CARBONATE. [Suspect]
     Active Substance: LITHIUM CARBONATE

REACTIONS (5)
  - Blood sodium increased [None]
  - Flat affect [None]
  - Refusal of treatment by patient [None]
  - Affective disorder [None]
  - Antipsychotic drug level below therapeutic [None]

NARRATIVE: CASE EVENT DATE: 20150612
